FAERS Safety Report 13828016 (Version 9)
Quarter: 2019Q4

REPORT INFORMATION
  Report Type: Spontaneous
  Country: KR (occurrence: KR)
  Receive Date: 20170803
  Receipt Date: 20191111
  Transmission Date: 20200122
  Serious: Yes (Other)
  Sender: FDA-Public Use
  Company Number: KR-009507513-1708KOR000674

PATIENT
  Age: 41 Year
  Sex: Male
  Weight: 67.8 kg

DRUGS (9)
  1. HEPA-MERZ [Concomitant]
     Indication: PROPHYLAXIS
     Dosage: 20 G ONCE DAILY
     Route: 042
     Dates: start: 20170624, end: 20170702
  2. CYCIN [Concomitant]
     Indication: INFECTION PROPHYLAXIS
     Dosage: UNK
     Dates: start: 20170616, end: 20170704
  3. ULCERLMIN [Concomitant]
     Active Substance: SUCRALFATE
     Dosage: 15 MILLILITER, THREE TIMES DAY
     Dates: start: 20170708, end: 20170718
  4. MAGMIL [Concomitant]
     Active Substance: MAGNESIUM HYDROXIDE
     Indication: CONSTIPATION PROPHYLAXIS
     Dosage: UNK
     Dates: start: 20170619, end: 20170711
  5. NOXAFIL [Suspect]
     Active Substance: POSACONAZOLE
     Indication: ANTIFUNGAL PROPHYLAXIS
     Dosage: 300 MG, TWICE A DAY
     Route: 048
     Dates: start: 20170616, end: 20170617
  6. URSA TABLETS [Concomitant]
     Indication: PROPHYLAXIS
     Dosage: UNK
     Dates: start: 20170717
  7. MUCOSTA [Concomitant]
     Active Substance: REBAMIPIDE
     Indication: PAIN PROPHYLAXIS
     Dosage: UNK
     Dates: start: 20170617
  8. NOXAFIL [Suspect]
     Active Substance: POSACONAZOLE
     Dosage: 300 MG, ONCE A DAY
     Route: 048
     Dates: start: 20170618, end: 20170710
  9. MAXIPIME [Concomitant]
     Active Substance: CEFEPIME HYDROCHLORIDE
     Indication: INFECTION PROPHYLAXIS
     Dosage: 1 GRAM TWICE DAY
     Route: 042
     Dates: start: 20170704, end: 20170707

REACTIONS (1)
  - Pericardial effusion [Recovered/Resolved]

NARRATIVE: CASE EVENT DATE: 20170708
